FAERS Safety Report 6997763-8 (Version None)
Quarter: 2010Q3

REPORT INFORMATION
  Report Type: 
  Country: None (occurrence: None)
  Receive Date: 20100919
  Receipt Date: 20100910
  Transmission Date: 20110219
  Serious: Yes (Other)
  Sender: FDA-Public Use
  Company Number: BE-BRISTOL-MYERS SQUIBB COMPANY-15288673

PATIENT
  Age: 45 Year
  Sex: Female
  Weight: 28 kg

DRUGS (1)
  1. CETUXIMAB [Suspect]
     Indication: HEAD AND NECK CANCER
     Dosage: STRENGTH:2MG/ML RECENT INFUSION ON 09SEP10 (250MG/M2, 18TH INFUSION).
     Route: 042
     Dates: start: 20100427

REACTIONS (1)
  - MALNUTRITION [None]
